FAERS Safety Report 8260416-2 (Version None)
Quarter: 2012Q2

REPORT INFORMATION
  Report Type: 
  Country: None (occurrence: None)
  Receive Date: 20120404
  Receipt Date: 20120327
  Transmission Date: 20120825
  Serious: Yes (Hospitalization)
  Sender: FDA-Public Use
  Company Number: GXBR2012US000786

PATIENT
  Sex: Female
  Weight: 48 kg

DRUGS (21)
  1. DOCETAXEL [Suspect]
     Dosage: 75 MG/M2, CYCLE 1
     Route: 042
     Dates: start: 20100901, end: 20100901
  2. PROCHLORPERAZINE MALEATE [Concomitant]
     Dosage: UNK DF, UNK
     Dates: start: 20100901
  3. NEULASTA [Suspect]
     Dosage: 5 MG, UNK
     Route: 058
     Dates: start: 20120101
  4. IBUPROFEN (ADVIL) [Concomitant]
     Dosage: UNK DF, UNK
     Dates: start: 20100713
  5. NEURONTIN [Concomitant]
     Dosage: 300 MG, UNK
     Dates: start: 20100928
  6. SOLU-MEDROL [Concomitant]
     Dosage: UNK DF, UNK
     Dates: start: 20100823
  7. ALOXI [Concomitant]
     Dosage: UNK DF, UNK
     Dates: start: 20100713
  8. DOCETAXEL [Suspect]
     Indication: BREAST CANCER METASTATIC
     Dosage: 75 MG/M2, CYCLE 22
     Route: 042
     Dates: start: 20120103, end: 20120103
  9. DESYREL [Concomitant]
     Dosage: UNK DF, UNK
  10. REGLAN [Concomitant]
     Dosage: UNK DF, UNK
     Dates: start: 20100901
  11. PHENERGAN [Concomitant]
     Dosage: UNK DF, UNK
     Dates: start: 20100713
  12. POTASSIUM CHLORIDE [Concomitant]
     Dosage: UNK DF, UNK
     Dates: start: 20100914
  13. TRAZODONE HCL [Concomitant]
     Dosage: UNK DF, UNK
     Dates: start: 20090713
  14. MEGACE [Concomitant]
     Dosage: UNK DF, UNK
  15. MULTIVITAMIN ^LAPPE^ [Concomitant]
     Dosage: UNK DF, UNK
     Dates: start: 20100413
  16. DEXAMETHASONE [Concomitant]
     Dosage: UNK DF, UNK
     Dates: start: 20100901
  17. LEUKINE [Concomitant]
     Dosage: UNK DF, UNK
     Dates: start: 20100907
  18. BENADRYL [Concomitant]
     Dosage: UNK DF, UNK
     Dates: start: 20100823
  19. PROMETHAZINE [Concomitant]
     Dosage: UNK DF, UNK
     Route: 054
     Dates: start: 20100901
  20. VICODIN [Concomitant]
     Dosage: UNK DF, UNK
  21. PROCRIT                            /00928302/ [Concomitant]
     Dosage: UNK DF, UNK

REACTIONS (3)
  - BONE PAIN [None]
  - LEUKOCYTOSIS [None]
  - WOUND INFECTION [None]
